FAERS Safety Report 9173576 (Version 2)
Quarter: 2013Q2

REPORT INFORMATION
  Report Type: Spontaneous
  Country: US (occurrence: None)
  Receive Date: 20130314
  Receipt Date: 20130411
  Transmission Date: 20140414
  Serious: Yes (Hospitalization, Other)
  Sender: FDA-Public Use
  Company Number: JPI-P-030502

PATIENT
  Age: 57 Year
  Sex: Female
  Weight: 44.45 kg

DRUGS (4)
  1. XYREM [Suspect]
     Indication: FIBROMYALGIA
     Dosage: 4.5 GM (2.25 GM, 2 IN 1 D), ORAL
     Route: 048
     Dates: start: 20110310
  2. PREGABALIN [Concomitant]
  3. DULOXETINE [Concomitant]
  4. TIZANIDINE [Concomitant]

REACTIONS (7)
  - Malaise [None]
  - Weight decreased [None]
  - Decreased appetite [None]
  - Scar [None]
  - Benign hepatic neoplasm [None]
  - Functional gastrointestinal disorder [None]
  - Post procedural complication [None]
